FAERS Safety Report 7421148-3 (Version None)
Quarter: 2011Q2

REPORT INFORMATION
  Report Type: 
  Country: None (occurrence: None)
  Receive Date: 20110418
  Receipt Date: 20110408
  Transmission Date: 20111010
  Serious: Yes (Other)
  Sender: FDA-Public Use
  Company Number: TW-GENZYME-POMP-1001502

PATIENT
  Sex: Male
  Weight: 10 kg

DRUGS (2)
  1. MYOZYME [Suspect]
     Indication: GLYCOGEN STORAGE DISEASE TYPE II
     Dosage: 20 MG/KG, Q2W
     Route: 042
     Dates: start: 20071121
  2. SINGULAIR [Concomitant]
     Dosage: 5 MG, QHS
     Dates: start: 20080723

REACTIONS (2)
  - RESPIRATORY FAILURE [None]
  - RESPIRATORY SYNCYTIAL VIRUS BRONCHIOLITIS [None]
